FAERS Safety Report 9268514 (Version 3)
Quarter: 2013Q4

REPORT INFORMATION
  Report Type: Spontaneous
  Country: US (occurrence: US)
  Receive Date: 20130502
  Receipt Date: 20131120
  Transmission Date: 20140711
  Serious: Yes (Hospitalization, Other)
  Sender: FDA-Public Use
  Company Number: US-UCBSA-084587

PATIENT
  Age: 29 Year
  Sex: Male
  Weight: 65.77 kg

DRUGS (3)
  1. VIMPAT [Suspect]
     Indication: CONVULSION
     Route: 048
     Dates: start: 20130209, end: 20130315
  2. KEPPRA [Suspect]
     Indication: CONVULSION
     Route: 048
     Dates: start: 20130203, end: 20130209
  3. DILANTIN [Suspect]
     Indication: CONVULSION
     Dates: start: 201302, end: 201302

REACTIONS (2)
  - Stevens-Johnson syndrome [Recovered/Resolved]
  - Drug reaction with eosinophilia and systemic symptoms [Recovered/Resolved]
